FAERS Safety Report 13705366 (Version 2)
Quarter: 2017Q3

REPORT INFORMATION
  Report Type: Report from Study
  Country: TW (occurrence: TW)
  Receive Date: 20170630
  Receipt Date: 20170824
  Transmission Date: 20171127
  Serious: Yes (Death, Hospitalization, Other)
  Sender: FDA-Public Use
  Company Number: PHHY2017TW093070

PATIENT
  Age: 64 Year
  Sex: Male
  Weight: 69.4 kg

DRUGS (3)
  1. EXJADE [Suspect]
     Active Substance: DEFERASIROX
     Dosage: 1000 MG/KG, QD
     Route: 048
     Dates: start: 20170221, end: 20170321
  2. EXJADE [Suspect]
     Active Substance: DEFERASIROX
     Dosage: 1250 MG/KG, QD
     Route: 048
     Dates: start: 20170322, end: 20170620
  3. EXJADE [Suspect]
     Active Substance: DEFERASIROX
     Indication: MYELODYSPLASTIC SYNDROME
     Dosage: 625 MG/KG, QD
     Route: 048
     Dates: start: 20170207, end: 20170220

REACTIONS (7)
  - Shock [Fatal]
  - Haemoglobin decreased [Unknown]
  - Platelet count decreased [Unknown]
  - Serum ferritin increased [Unknown]
  - White blood cell count decreased [Unknown]
  - Blood creatinine increased [Not Recovered/Not Resolved]
  - Dyspnoea [Unknown]

NARRATIVE: CASE EVENT DATE: 20170306
